FAERS Safety Report 10504681 (Version 1)
Quarter: 2014Q4

REPORT INFORMATION
  Report Type: Spontaneous
  Country: CA (occurrence: None)
  Receive Date: 20141006
  Receipt Date: 20141006
  Transmission Date: 20150528
  Serious: Yes (Other)
  Sender: FDA-Public Use
  Company Number: 2014-CA-012509

PATIENT
  Age: 71 Year
  Sex: Male
  Weight: 230 kg

DRUGS (4)
  1. XYREM [Suspect]
     Active Substance: SODIUM OXYBATE
     Indication: CATAPLEXY
     Route: 048
     Dates: start: 20080123
  2. CANDESARTAN [Concomitant]
     Active Substance: CANDESARTAN
  3. DEXIDRINE (DEXAMFETAMINE SULFATE) [Concomitant]
  4. CALCIUM [Concomitant]
     Active Substance: CALCIUM

REACTIONS (6)
  - Prostate cancer [None]
  - Enuresis [None]
  - Wrong technique in drug usage process [None]
  - Incorrect dose administered [None]
  - Urinary incontinence [None]
  - Bladder injury [None]

NARRATIVE: CASE EVENT DATE: 20100101
